FAERS Safety Report 23523464 (Version 1)
Quarter: 2024Q1

REPORT INFORMATION
  Report Type: Other
  Country: CA (occurrence: CA)
  Receive Date: 20240214
  Receipt Date: 20240214
  Transmission Date: 20240410
  Serious: Yes (Hospitalization, Other)
  Sender: FDA-Public Use
  Company Number: CA-APOTEX-2024AP002110

PATIENT
  Age: 85 Year
  Sex: Male
  Weight: 65 kg

DRUGS (2)
  1. AMOXICILLIN\CLAVULANATE POTASSIUM [Suspect]
     Active Substance: AMOXICILLIN\CLAVULANATE POTASSIUM
     Indication: Chronic obstructive pulmonary disease
     Dosage: 875 MILLIGRAM, BID
     Route: 048
  2. ACETAMINOPHEN [Concomitant]
     Active Substance: ACETAMINOPHEN
     Indication: Product used for unknown indication
     Dosage: UNK
     Route: 065

REACTIONS (5)
  - Cholestasis [Recovering/Resolving]
  - Chromaturia [Recovering/Resolving]
  - Jaundice [Recovering/Resolving]
  - Liver function test abnormal [Recovering/Resolving]
  - Abdominal discomfort [Recovering/Resolving]
